FAERS Safety Report 14416610 (Version 1)
Quarter: 2018Q1

REPORT INFORMATION
  Report Type: Spontaneous
  Country: US (occurrence: US)
  Receive Date: 20180122
  Receipt Date: 20180122
  Transmission Date: 20180509
  Serious: No
  Sender: FDA-Public Use
  Company Number: US-DENTSPLY PHARMACEUTICAL-2017SCDP000068

PATIENT

DRUGS (1)
  1. ORAQIX [Suspect]
     Active Substance: LIDOCAINE\PRILOCAINE
     Indication: LOCAL ANAESTHESIA
     Dosage: UNK
     Route: 061

REACTIONS (1)
  - Oral discomfort [Unknown]
